FAERS Safety Report 6100498-7 (Version None)
Quarter: 2009Q1

REPORT INFORMATION
  Report Type: 
  Country: None (occurrence: None)
  Receive Date: 20090227
  Receipt Date: 20090227
  Transmission Date: 20090719
  Serious: Yes (Hospitalization)
  Sender: FDA-Public Use
  Company Number: None

PATIENT
  Sex: Male
  Weight: 78.8 kg

DRUGS (3)
  1. FLUOROURACIL [Suspect]
     Dosage: 5448 MG
  2. LEUCOVORIN CALCIUM [Suspect]
     Dosage: 784 MG
  3. ELOXATIN [Suspect]
     Dosage: 166 MG

REACTIONS (2)
  - INFECTION [None]
  - PNEUMONIA [None]
